FAERS Safety Report 9491044 (Version 1)
Quarter: 2013Q3

REPORT INFORMATION
  Report Type: Spontaneous
  Country: US (occurrence: US)
  Receive Date: 20130830
  Receipt Date: 20130830
  Transmission Date: 20140515
  Serious: No
  Sender: FDA-Public Use
  Company Number: US-PFIZER INC-2013249306

PATIENT
  Age: 45 Year
  Sex: Female

DRUGS (4)
  1. RELPAX [Suspect]
     Indication: MIGRAINE
     Dosage: 20 MG, AS NEEDED
     Dates: start: 2010
  2. DEXILANT [Concomitant]
     Dosage: 60 MG, 1X/DAY
  3. VENTOLIN [Concomitant]
     Dosage: ONE PUFF, AS NEEDED
  4. FLONASE [Concomitant]
     Dosage: 2 SPRAYS IN EACH NOSTRIL, 1X/DAY
     Route: 045

REACTIONS (2)
  - Expired drug administered [Unknown]
  - Drug ineffective [Unknown]
